FAERS Safety Report 20058548 (Version 4)
Quarter: 2021Q4

REPORT INFORMATION
  Report Type: Spontaneous
  Country: JP (occurrence: JP)
  Receive Date: 20211111
  Receipt Date: 20211227
  Transmission Date: 20220303
  Serious: Yes (Death, Life-Threatening, Hospitalization, Other)
  Sender: FDA-Public Use
  Company Number: JP-PFIZER INC-2021790782

PATIENT
  Age: 83 Year
  Sex: Female
  Weight: 42 kg

DRUGS (9)
  1. COMIRNATY [Interacting]
     Active Substance: TOZINAMERAN
     Indication: COVID-19 immunisation
     Dosage: DOSE 1, SINGLE
     Route: 030
     Dates: start: 20210611, end: 20210611
  2. METHOTREXATE SODIUM [Interacting]
     Active Substance: METHOTREXATE SODIUM
     Indication: Rheumatoid arthritis
     Dosage: 6 MG, WEEKLY
     Dates: start: 20210611
  3. ORENCIA [Interacting]
     Active Substance: ABATACEPT
     Indication: Rheumatoid arthritis
     Dosage: 125 MG, WEEKLY
     Route: 058
     Dates: start: 20210610, end: 20210617
  4. ORENCIA [Interacting]
     Active Substance: ABATACEPT
     Dosage: 125 MG
     Dates: start: 20210617
  5. PREDNISOLONE [Concomitant]
     Active Substance: PREDNISOLONE
     Indication: Rheumatoid arthritis
     Dosage: 2 DF, 1X/DAY
     Route: 048
     Dates: end: 20210626
  6. ALENDRONATE SODIUM [Concomitant]
     Active Substance: ALENDRONATE SODIUM
     Indication: Prophylaxis
     Dosage: 1 DF, WEEKLY
     Route: 048
     Dates: end: 20210622
  7. RHEUMATREX [Concomitant]
     Active Substance: METHOTREXATE SODIUM
     Indication: Rheumatoid arthritis
     Dosage: 3 DF, WEEKLY
     Route: 048
     Dates: end: 20210625
  8. LOXOPROFEN SODIUM [Concomitant]
     Active Substance: LOXOPROFEN SODIUM
     Dosage: UNK
     Route: 048
  9. LANSOPRAZOLE AMOXICILLIN CLARITHROMYCIN [Concomitant]
     Active Substance: AMOXICILLIN\CLARITHROMYCIN\LANSOPRAZOLE
     Dosage: UNK
     Route: 048

REACTIONS (12)
  - Cerebral infarction [Fatal]
  - Thrombosis with thrombocytopenia syndrome [Fatal]
  - Cerebral thrombosis [Fatal]
  - Cerebral artery embolism [Fatal]
  - Drug interaction [Fatal]
  - Coma [Not Recovered/Not Resolved]
  - Quadriplegia [Not Recovered/Not Resolved]
  - Respiratory failure [Unknown]
  - Altered state of consciousness [Unknown]
  - Neck pain [Unknown]
  - Headache [Unknown]
  - Malaise [Unknown]

NARRATIVE: CASE EVENT DATE: 20210601
